FAERS Safety Report 7074780-3 (Version None)
Quarter: 2010Q4

REPORT INFORMATION
  Report Type: 
  Country: None (occurrence: None)
  Receive Date: 20101029
  Receipt Date: 20101021
  Transmission Date: 20110411
  Serious: Yes (Hospitalization, Other)
  Sender: FDA-Public Use
  Company Number: US-AMGEN-USASP2010001274

PATIENT

DRUGS (1)
  1. ENBREL [Suspect]
     Indication: RHEUMATOID ARTHRITIS
     Dates: start: 20000501

REACTIONS (4)
  - CORNEAL DISORDER [None]
  - FOOT OPERATION [None]
  - INCORRECT STORAGE OF DRUG [None]
  - RHEUMATOID ARTHRITIS [None]
